FAERS Safety Report 18485911 (Version 1)
Quarter: 2020Q4

REPORT INFORMATION
  Report Type: Spontaneous
  Country: CN (occurrence: CN)
  Receive Date: 20201110
  Receipt Date: 20201110
  Transmission Date: 20210114
  Serious: Yes (Other)
  Sender: FDA-Public Use
  Company Number: CN-RISING PHARMA HOLDINGS, INC.-2020RIS000255

PATIENT
  Age: 29 Year
  Sex: Female

DRUGS (1)
  1. METHIMAZOLE. [Suspect]
     Active Substance: METHIMAZOLE
     Indication: BASEDOW^S DISEASE
     Dosage: 30 MILLIGRAM, QD
     Route: 065

REACTIONS (1)
  - Antithyroid arthritis syndrome [Recovered/Resolved]
